FAERS Safety Report 23136278 (Version 1)
Quarter: 2023Q4

REPORT INFORMATION
  Report Type: Spontaneous
  Country: US (occurrence: US)
  Receive Date: 20231102
  Receipt Date: 20231102
  Transmission Date: 20240110
  Serious: Yes (Other)
  Sender: FDA-Public Use
  Company Number: US-NOVOPROD-1132204

PATIENT
  Sex: Female

DRUGS (1)
  1. OZEMPIC [Suspect]
     Active Substance: SEMAGLUTIDE
     Indication: Diabetes mellitus
     Dosage: 0.25 MG, QD
     Route: 058
     Dates: start: 20211121, end: 20231001

REACTIONS (2)
  - Pancreatic carcinoma [Recovered/Resolved]
  - Inappropriate schedule of product administration [Unknown]
